FAERS Safety Report 4634970-3 (Version None)
Quarter: 2005Q2

REPORT INFORMATION
  Report Type: 
  Country: None (occurrence: None)
  Receive Date: 20050414
  Receipt Date: 20050330
  Transmission Date: 20051028
  Serious: Yes (Other)
  Sender: FDA-Public Use
  Company Number: HQWYE652304APR05

PATIENT
  Sex: Female

DRUGS (7)
  1. ENBREL [Suspect]
     Indication: RHEUMATOID ARTHRITIS
  2. ENBREL [Suspect]
     Dates: start: 20041001
  3. PREDNISOLONE [Concomitant]
  4. PLAQUENIL [Concomitant]
  5. FELDENE [Concomitant]
  6. ACYCLOVIR [Concomitant]
  7. METHOTREXATE [Concomitant]

REACTIONS (4)
  - DRUG ERUPTION [None]
  - RASH MACULO-PAPULAR [None]
  - RED BLOOD CELL SEDIMENTATION RATE INCREASED [None]
  - VASCULITIS [None]
